FAERS Safety Report 23500037 (Version 1)
Quarter: 2024Q1

REPORT INFORMATION
  Report Type: Spontaneous
  Country: GB (occurrence: GB)
  Receive Date: 20240208
  Receipt Date: 20240208
  Transmission Date: 20240409
  Serious: No
  Sender: FDA-Public Use
  Company Number: None

PATIENT
  Age: 30 Year
  Sex: Female

DRUGS (1)
  1. CEPHALEXIN [Suspect]
     Active Substance: CEPHALEXIN
     Indication: Pyelonephritis
     Dosage: UNK
     Route: 065
     Dates: start: 20231121

REACTIONS (1)
  - Heavy menstrual bleeding [Not Recovered/Not Resolved]
